FAERS Safety Report 4330313-3 (Version None)
Quarter: 2004Q1

REPORT INFORMATION
  Report Type: 
  Country: None (occurrence: None)
  Receive Date: 20040329
  Receipt Date: 20040317
  Transmission Date: 20041129
  Serious: Yes (Hospitalization)
  Sender: FDA-Public Use
  Company Number: 2004016080

PATIENT
  Age: 48 Year
  Sex: Male

DRUGS (6)
  1. VIRACEPT [Suspect]
     Indication: HIV INFECTION
     Dosage: ORAL
     Route: 048
  2. SAQUINAVIR MESILATE (SAQUINAVIR MESILATE) [Suspect]
     Indication: HIV INFECTION
     Dosage: ORAL
     Route: 048
     Dates: start: 19980215, end: 19981015
  3. LAMIVUDINE (LAMIVUDINE) [Suspect]
     Indication: ILL-DEFINED DISORDER
     Dosage: ORAL
     Route: 048
  4. NEVIRAPINE (NEVIRAPINE) [Suspect]
     Indication: HIV INFECTION
     Dosage: ORAL
     Route: 048
  5. STAVUDINE (STAVUDINE) [Suspect]
     Indication: ILL-DEFINED DISORDER
     Dosage: ORAL
     Route: 048
     Dates: start: 19961015, end: 19981015
  6. METFORMIN HYDROCHLORIDE [Concomitant]

REACTIONS (3)
  - DIABETES MELLITUS [None]
  - HYPERTRIGLYCERIDAEMIA [None]
  - LIPOATROPHY [None]
